FAERS Safety Report 19446398 (Version 8)
Quarter: 2022Q2

REPORT INFORMATION
  Report Type: Other
  Country: JP (occurrence: JP)
  Receive Date: 20210622
  Receipt Date: 20220503
  Transmission Date: 20220720
  Serious: Yes (Hospitalization, Other)
  Sender: FDA-Public Use
  Company Number: JP-CHUGAI-2021002794AA

PATIENT
  Age: 69 Year
  Sex: Male
  Weight: 65.8 kg

DRUGS (13)
  1. ATEZOLIZUMAB [Suspect]
     Active Substance: ATEZOLIZUMAB
     Indication: Non-small cell lung cancer
     Route: 041
     Dates: start: 20210219, end: 20210219
  2. ATEZOLIZUMAB [Suspect]
     Active Substance: ATEZOLIZUMAB
     Route: 041
     Dates: start: 20210319, end: 20210621
  3. ATEZOLIZUMAB [Suspect]
     Active Substance: ATEZOLIZUMAB
     Route: 041
     Dates: start: 20210816, end: 20210816
  4. BEVACIZUMAB [Suspect]
     Active Substance: BEVACIZUMAB
     Indication: Non-small cell lung cancer
     Route: 041
     Dates: start: 20210219, end: 20210219
  5. BEVACIZUMAB [Suspect]
     Active Substance: BEVACIZUMAB
     Route: 041
     Dates: start: 20210319, end: 20210319
  6. CARBOPLATIN [Suspect]
     Active Substance: CARBOPLATIN
     Indication: Non-small cell lung cancer
     Route: 041
     Dates: start: 20210219, end: 20210219
  7. CARBOPLATIN [Suspect]
     Active Substance: CARBOPLATIN
     Dosage: MOST RECENT DOSE: 19/MAR/2021
     Route: 041
     Dates: start: 20210319, end: 20210319
  8. PACLITAXEL [Suspect]
     Active Substance: PACLITAXEL
     Indication: Non-small cell lung cancer
     Route: 041
     Dates: start: 20210219, end: 20210219
  9. PACLITAXEL [Suspect]
     Active Substance: PACLITAXEL
     Dosage: MOST RECENT DOSE BEFORE AE: 19/MAR/2021
     Route: 041
     Dates: start: 20210319, end: 20210319
  10. CARBOPLATIN [Concomitant]
     Active Substance: CARBOPLATIN
     Indication: Lung adenocarcinoma
     Dosage: 445 MILLIGRAM, QD
     Route: 041
     Dates: start: 20210219, end: 20210219
  11. CARBOPLATIN [Concomitant]
     Active Substance: CARBOPLATIN
     Dosage: 448 MILLIGRAM
     Route: 041
     Dates: start: 20210319
  12. PACLITAXEL [Concomitant]
     Active Substance: PACLITAXEL
     Indication: Lung adenocarcinoma
     Dosage: 286 MILLIGRAM, QD
     Route: 041
     Dates: start: 20210219, end: 20210219
  13. PACLITAXEL [Concomitant]
     Active Substance: PACLITAXEL
     Dosage: 278 MILLIGRAM
     Route: 041
     Dates: start: 20210319

REACTIONS (12)
  - Duodenal ulcer haemorrhage [Recovering/Resolving]
  - Anaemia [Recovering/Resolving]
  - Fall [Unknown]
  - Dizziness [Unknown]
  - Fatigue [Recovering/Resolving]
  - Humerus fracture [Recovering/Resolving]
  - Fall [Unknown]
  - Febrile neutropenia [Recovered/Resolved]
  - Ulnar nerve injury [Recovering/Resolving]
  - Nausea [Recovering/Resolving]
  - Peripheral sensory neuropathy [Recovering/Resolving]
  - Decreased appetite [Recovering/Resolving]

NARRATIVE: CASE EVENT DATE: 20210301
